FAERS Safety Report 5805258-X (Version None)
Quarter: 2008Q3

REPORT INFORMATION
  Report Type: 
  Country: None (occurrence: None)
  Receive Date: 20080707
  Receipt Date: 20080623
  Transmission Date: 20090109
  Serious: Yes (Other)
  Sender: FDA-Public Use
  Company Number: 2008AL003164

PATIENT
  Sex: Female
  Weight: 53.5244 kg

DRUGS (1)
  1. DIGOXIN [Suspect]

REACTIONS (2)
  - CARDIOACTIVE DRUG LEVEL ABOVE THERAPEUTIC [None]
  - VOMITING [None]
